FAERS Safety Report 5672445-3 (Version None)
Quarter: 2008Q1

REPORT INFORMATION
  Report Type: 
  Country: None (occurrence: None)
  Receive Date: 20080319
  Receipt Date: 20080311
  Transmission Date: 20080703
  Serious: Yes (Hospitalization)
  Sender: FDA-Public Use
  Company Number: US-JNJFOC-20080302448

PATIENT
  Age: 55 Year
  Sex: Male
  Weight: 113.4 kg

DRUGS (9)
  1. TYLENOL (CAPLET) [Suspect]
     Route: 048
  2. TYLENOL (CAPLET) [Suspect]
     Indication: BACK PAIN
     Dosage: 1300 MG THEN 1950 MG
     Route: 048
  3. MUCINEX [Suspect]
     Indication: RESPIRATORY TRACT CONGESTION
  4. MUCINEX [Suspect]
     Indication: NASOPHARYNGITIS
     Dosage: A COUPLE
  5. TUSSIN [Suspect]
     Indication: RESPIRATORY TRACT CONGESTION
  6. TUSSIN [Suspect]
     Indication: NASOPHARYNGITIS
     Dosage: A SPOONFUL
  7. ADVIL [Concomitant]
     Indication: MYALGIA
  8. NEXIUM [Concomitant]
     Indication: GASTROOESOPHAGEAL REFLUX DISEASE
  9. LISINOPRIL [Concomitant]
     Indication: BLOOD PRESSURE

REACTIONS (3)
  - BLOOD PRESSURE DECREASED [None]
  - EXPIRED DRUG ADMINISTERED [None]
  - GLOBAL AMNESIA [None]
